FAERS Safety Report 11623601 (Version 1)
Quarter: 2015Q4

REPORT INFORMATION
  Report Type: Spontaneous
  Country: US (occurrence: None)
  Receive Date: 20151009
  Receipt Date: 20151009
  Transmission Date: 20160304
  Serious: Yes (Disabling)
  Sender: FDA-Public Use
  Company Number: None

PATIENT
  Age: 45 Year
  Sex: Female
  Weight: 90.72 kg

DRUGS (27)
  1. MINOCYCLINE\MINOCYCLINE HYDROCHLORIDE [Concomitant]
     Active Substance: MINOCYCLINE\MINOCYCLINE HYDROCHLORIDE
  2. PERCOCET [Concomitant]
     Active Substance: ACETAMINOPHEN\OXYCODONE HYDROCHLORIDE
  3. LIPITOR [Concomitant]
     Active Substance: ATORVASTATIN CALCIUM
  4. PROZAC [Concomitant]
     Active Substance: FLUOXETINE HYDROCHLORIDE
  5. VALTREX [Concomitant]
     Active Substance: VALACYCLOVIR HYDROCHLORIDE
  6. WELLBUTRIN [Concomitant]
     Active Substance: BUPROPION HYDROCHLORIDE
  7. TOPOROL XL [Concomitant]
  8. MULTIVITAMIN GUMMY [Concomitant]
  9. IBUPROFEN. [Concomitant]
     Active Substance: IBUPROFEN
  10. METRO GEL [Concomitant]
  11. LIDEC [Concomitant]
  12. CLARITIN-D 12 HOUR [Concomitant]
     Active Substance: LORATADINE\PSEUDOEPHEDRINE SULFATE
  13. GABAPENTINE [Concomitant]
     Active Substance: GABAPENTIN
  14. COCONUT OIL [Concomitant]
     Active Substance: COCONUT OIL
  15. TYLENOL [Concomitant]
     Active Substance: ACETAMINOPHEN
  16. KLONOPIN [Concomitant]
     Active Substance: CLONAZEPAM
  17. HAIR SKIN NAILS GUMMY [Concomitant]
  18. GARLIC. [Concomitant]
     Active Substance: GARLIC
  19. ZQUILL [Concomitant]
  20. NUVIGIL [Suspect]
     Active Substance: ARMODAFINIL
     Indication: NARCOLEPSY
     Dosage: 1 PILL DAILY
     Route: 048
  21. MUPIROCIN. [Concomitant]
     Active Substance: MUPIROCIN
  22. CLINDAMYCIN [Concomitant]
     Active Substance: CLINDAMYCIN\CLINDAMYCIN PHOSPHATE
  23. NEXIUM [Concomitant]
     Active Substance: ESOMEPRAZOLE MAGNESIUM
  24. ARMPIT THYROID [Concomitant]
  25. VENTOLINE HFA [Concomitant]
  26. LIDOCAINE. [Concomitant]
     Active Substance: LIDOCAINE
  27. COQ10 [Concomitant]
     Active Substance: UBIDECARENONE

REACTIONS (11)
  - Skin exfoliation [None]
  - Scar [None]
  - Lip swelling [None]
  - Stomatitis [None]
  - Skin lesion [None]
  - Post procedural swelling [None]
  - Wound complication [None]
  - Pain [None]
  - Depression [None]
  - Suture rupture [None]
  - Lip ulceration [None]
